FAERS Safety Report 5362978-1 (Version None)
Quarter: 2007Q2

REPORT INFORMATION
  Report Type: 
  Country: None (occurrence: None)
  Receive Date: 20070615
  Receipt Date: 20070601
  Transmission Date: 20071010
  Serious: Yes (Other)
  Sender: FDA-Public Use
  Company Number: E3810-00957-SPO-US

PATIENT
  Age: 59 Year
  Sex: Male

DRUGS (3)
  1. ACIPHEX [Suspect]
     Indication: GASTROOESOPHAGEAL REFLUX DISEASE
     Dosage: 10 MG, 1 IN 1 D, ORAL
     Route: 048
  2. ROLAIDS [Suspect]
     Indication: GASTROOESOPHAGEAL REFLUX DISEASE
     Dosage: 6-24, ORAL
     Route: 048
  3. ELEMENTAL MAGNESIUM (MAGNESIUM) [Concomitant]

REACTIONS (7)
  - ASTHENIA [None]
  - ELECTROLYTE IMBALANCE [None]
  - FATIGUE [None]
  - HYPOCALCAEMIA [None]
  - HYPOKALAEMIA [None]
  - HYPOMAGNESAEMIA [None]
  - LOSS OF CONSCIOUSNESS [None]
